FAERS Safety Report 7953954-0 (Version None)
Quarter: 2011Q4

REPORT INFORMATION
  Report Type: 
  Country: None (occurrence: None)
  Receive Date: 20111202
  Receipt Date: 20111130
  Transmission Date: 20120403
  Serious: Yes (Life-Threatening, Hospitalization)
  Sender: FDA-Public Use
  Company Number: DE-B.I. PHARMACEUTICALS,INC./RIDGEFIELD-2011-DE-06180DE

PATIENT
  Sex: Male
  Weight: 100 kg

DRUGS (8)
  1. RAMIPRIL [Concomitant]
     Indication: HYPERTENSION
     Dosage: 10 MG
     Route: 048
     Dates: start: 20110822
  2. PRADAXA [Suspect]
     Indication: ATRIAL FIBRILLATION
  3. METOPROLOL [Concomitant]
     Indication: TACHYARRHYTHMIA
     Dosage: 1.5 ANZ
     Route: 048
     Dates: start: 20110822
  4. ASPIRIN [Suspect]
     Indication: ANTICOAGULANT THERAPY
  5. PRADAXA [Suspect]
     Indication: TACHYARRHYTHMIA
     Dosage: 220 MG
     Route: 048
     Dates: start: 20110922, end: 20110927
  6. ASPIRIN [Suspect]
     Indication: CORONARY ARTERY DISEASE
     Dosage: 100 MG
     Route: 048
     Dates: start: 20110822
  7. METOPROLOL [Concomitant]
     Indication: HYPERTENSION
  8. HEPARIN [Concomitant]

REACTIONS (12)
  - GASTRIC ULCER [None]
  - HAEMOGLOBIN DECREASED [None]
  - DYSPNOEA [None]
  - GASTROINTESTINAL DISORDER [None]
  - MELAENA [None]
  - UPPER GASTROINTESTINAL HAEMORRHAGE [None]
  - NAUSEA [None]
  - DIZZINESS [None]
  - HAEMATEMESIS [None]
  - DIARRHOEA [None]
  - VOMITING [None]
  - GENERAL PHYSICAL HEALTH DETERIORATION [None]
